FAERS Safety Report 9185056 (Version 1)
Quarter: 2012Q4

REPORT INFORMATION
  Report Type: Report from Study
  Country: BR (occurrence: BR)
  Receive Date: 20121101
  Receipt Date: 20121101
  Transmission Date: 20130627
  Serious: Yes (Other)
  Sender: FDA-Public Use
  Company Number: BR-ROCHE-1151134

PATIENT
  Age: 68 Year
  Sex: Female
  Weight: 70 kg

DRUGS (6)
  1. BEVACIZUMAB [Suspect]
     Indication: COLORECTAL CANCER
     Dosage: Patient received 12 cycles
     Route: 042
     Dates: start: 20120326, end: 20121030
  2. IRINOTECAN [Concomitant]
     Indication: COLORECTAL CANCER
     Dosage: Patient received 12 cycles
     Route: 065
     Dates: start: 20120326, end: 20121030
  3. FLUOROURACIL [Concomitant]
     Indication: COLORECTAL CANCER
     Dosage: Patient received 12 cycles
     Route: 065
     Dates: start: 20110801, end: 20120206
  4. FLUOROURACIL [Concomitant]
     Dosage: Patient received 12 cycles
     Route: 065
     Dates: start: 20120326, end: 20121030
  5. LEUCOVORIN [Concomitant]
     Indication: COLORECTAL CANCER
     Dosage: Patient received 12 cycles
     Route: 065
     Dates: start: 20110801, end: 20120206
  6. LEUCOVORIN [Concomitant]
     Dosage: Patient received 12 cycles
     Route: 065
     Dates: start: 20120326, end: 20121030

REACTIONS (1)
  - Disease progression [Unknown]
